FAERS Safety Report 6626891-1 (Version None)
Quarter: 2010Q1

REPORT INFORMATION
  Report Type: 
  Country: None (occurrence: None)
  Receive Date: 20100311
  Receipt Date: 20100308
  Transmission Date: 20100710
  Serious: Yes (Death, Other)
  Sender: FDA-Public Use
  Company Number: US-PURDUE-USA-2010-0042584

PATIENT
  Sex: Male

DRUGS (2)
  1. RYZOLT [Suspect]
     Indication: DRUG USE FOR UNKNOWN INDICATION
     Dosage: 300 MG, UNK
  2. VARIOUS MEDICATIONS [Concomitant]

REACTIONS (2)
  - DEATH [None]
  - PNEUMONIA [None]
